FAERS Safety Report 4271585-3 (Version None)
Quarter: 2004Q1

REPORT INFORMATION
  Report Type: 
  Country: None (occurrence: None)
  Receive Date: 20040113
  Receipt Date: 20031229
  Transmission Date: 20041129
  Serious: Yes (Hospitalization)
  Sender: FDA-Public Use
  Company Number: STA-AE-03-MTX-105

PATIENT
  Age: 48 Year
  Sex: Female

DRUGS (3)
  1. METHOTREXATE [Suspect]
     Dosage: 10 MG 1 X PER 1 WK
  2. FOLIC ACID [Suspect]
     Dosage: 5MG 1 X PER 1 DAY
  3. TRIMETHOPRIM [Suspect]
     Indication: URINARY TRACT INFECTION
     Dosage: 300 MG

REACTIONS (7)
  - BLOOD BILIRUBIN INCREASED [None]
  - BONE MARROW DEPRESSION [None]
  - DRUG INTERACTION [None]
  - HAEMOLYTIC ANAEMIA [None]
  - MALAISE [None]
  - METASTATIC NEOPLASM [None]
  - URINARY TRACT INFECTION [None]
